FAERS Safety Report 11884063 (Version 1)
Quarter: 2016Q1

REPORT INFORMATION
  Report Type: Spontaneous
  Country: US (occurrence: US)
  Receive Date: 20160102
  Receipt Date: 20160102
  Transmission Date: 20160526
  Serious: Yes (Life-Threatening, Hospitalization, Other)
  Sender: FDA-Public Use
  Company Number: US-BRISTOL-MYERS SQUIBB COMPANY-BMS-2015-090404

PATIENT
  Age: 69 Year
  Sex: Male

DRUGS (1)
  1. COUMADINE [Suspect]
     Active Substance: WARFARIN SODIUM
     Indication: CELLULITIS
     Route: 065

REACTIONS (3)
  - Gastric bypass [Unknown]
  - Haemorrhage [Unknown]
  - Vena cava filter insertion [Unknown]

NARRATIVE: CASE EVENT DATE: 2002
